FAERS Safety Report 10064572 (Version 1)
Quarter: 2014Q1

REPORT INFORMATION
  Report Type: Spontaneous
  Country: US (occurrence: None)
  Receive Date: 20140328
  Receipt Date: 20140328
  Transmission Date: 20141002
  Serious: No
  Sender: FDA-Public Use
  Company Number: 1000054438

PATIENT
  Sex: Female

DRUGS (8)
  1. LINZESS [Suspect]
     Indication: IRRITABLE BOWEL SYNDROME
     Route: 048
     Dates: start: 201311
  2. XIFAXAN (RIFAXIMIN) [Concomitant]
  3. CRESTOR (ROSUVASTATIN CALCIUM) [Concomitant]
  4. PLAVIX (CLOPIDOGREL BISULFATE) (CLOPIDOGREL BISULFATE) [Concomitant]
  5. ENALAPRIL [Concomitant]
  6. HORMONE REPLACEMENT (NOS) [Concomitant]
  7. VITAMINS (NOS) [Concomitant]
  8. VSL#3 [Concomitant]

REACTIONS (2)
  - Diarrhoea [None]
  - Intentional drug misuse [None]
